FAERS Safety Report 12296865 (Version 1)
Quarter: 2016Q2

REPORT INFORMATION
  Report Type: Spontaneous
  Country: US (occurrence: US)
  Receive Date: 20160422
  Receipt Date: 20160422
  Transmission Date: 20160815
  Serious: No
  Sender: FDA-Public Use
  Company Number: US-GLAXOSMITHKLINE-US2016053653

PATIENT
  Sex: Female

DRUGS (1)
  1. VOLTAREN [Suspect]
     Active Substance: DICLOFENAC SODIUM
     Indication: BACK PAIN
     Dosage: UNK UNK, U
     Route: 061
     Dates: start: 20160404

REACTIONS (7)
  - Dizziness [Not Recovered/Not Resolved]
  - Malaise [Unknown]
  - Headache [Unknown]
  - Drug prescribing error [Unknown]
  - Dry mouth [Not Recovered/Not Resolved]
  - Application site warmth [Unknown]
  - Off label use [Unknown]

NARRATIVE: CASE EVENT DATE: 20160404
